FAERS Safety Report 7688192-2 (Version None)
Quarter: 2011Q3

REPORT INFORMATION
  Report Type: 
  Country: None (occurrence: None)
  Receive Date: 20110817
  Receipt Date: 20110510
  Transmission Date: 20111222
  Serious: Yes (Life-Threatening, Disabling, Other)
  Sender: FDA-Public Use
  Company Number: US-GLAXOSMITHKLINE-A0926795A

PATIENT
  Age: 24 Year
  Sex: Male

DRUGS (1)
  1. VOTRIENT [Suspect]
     Indication: EWING'S SARCOMA

REACTIONS (1)
  - PULMONARY HAEMORRHAGE [None]
